FAERS Safety Report 18524224 (Version 1)
Quarter: 2020Q4

REPORT INFORMATION
  Report Type: Spontaneous
  Country: US (occurrence: US)
  Receive Date: 20201119
  Receipt Date: 20201119
  Transmission Date: 20210114
  Serious: No
  Sender: FDA-Public Use
  Company Number: US-BAUSCH-BL-2020-031855

PATIENT
  Age: 37 Year
  Sex: Female

DRUGS (1)
  1. UCERIS [Suspect]
     Active Substance: BUDESONIDE
     Indication: COLITIS ULCERATIVE
     Dosage: APPROXIMATELY ONE YEAR AGO FROM THE DATE OF REPORT, 1 METERED DOSE
     Route: 054
     Dates: end: 20201022

REACTIONS (4)
  - Malaise [Unknown]
  - Product contamination [Unknown]
  - Product outer packaging issue [Unknown]
  - Product dose omission issue [Unknown]

NARRATIVE: CASE EVENT DATE: 20201022
